FAERS Safety Report 7734028-0 (Version None)
Quarter: 2011Q3

REPORT INFORMATION
  Report Type: 
  Country: None (occurrence: None)
  Receive Date: 20110907
  Receipt Date: 20110905
  Transmission Date: 20111222
  Serious: Yes (Hospitalization)
  Sender: FDA-Public Use
  Company Number: DE-ROCHE-712241

PATIENT
  Sex: Female
  Weight: 67 kg

DRUGS (5)
  1. SYMBICORT [Concomitant]
  2. ALBUTEROL [Concomitant]
  3. TRASTUZUMAB [Suspect]
     Indication: BREAST CANCER
     Dosage: DATE OF LAST DOSE PRIOR TO SAE: 23 JUN 2010; FORM: INFUSION PER PROTOCOL
     Route: 042
     Dates: start: 20100623
  4. EPIRUBICIN [Suspect]
     Indication: BREAST CANCER
     Dosage: DATE OF LAST DOSE PRIOR TO SAE; 24 JUN 2010
     Route: 042
     Dates: start: 20100624
  5. CYCLOPHOSPHAMIDE [Suspect]
     Indication: BREAST CANCER
     Dosage: DATE OF LAST DOSE PRIOR TO SAE: 24 JUN 2010; FORM: INFUSION PER PROTOCOL
     Route: 042
     Dates: start: 20100624

REACTIONS (1)
  - ASTHMA [None]
